FAERS Safety Report 20836855 (Version 1)
Quarter: 2022Q2

REPORT INFORMATION
  Report Type: Spontaneous
  Country: US (occurrence: None)
  Receive Date: 20220517
  Receipt Date: 20220517
  Transmission Date: 20220721
  Serious: Yes (Other)
  Sender: FDA-Public Use
  Company Number: US-Hikma Pharmaceuticals USA Inc.-US-H14001-21-05234

PATIENT
  Sex: Male

DRUGS (2)
  1. TESTOSTERONE CYPIONATE [Suspect]
     Active Substance: TESTOSTERONE CYPIONATE
     Indication: Product used for unknown indication
     Dosage: A COMBINATION OF TESTOSTERONE CYPIONATE AND ENANTHATE 1:2
     Route: 065
  2. TESTOSTERONE ENANTHATE [Concomitant]
     Active Substance: TESTOSTERONE ENANTHATE
     Indication: Product used for unknown indication
     Dosage: A COMBINATION OF TESTOSTERONE CYPIONATE AND ENANTHATE 1:2
     Route: 065

REACTIONS (3)
  - Product tampering [Unknown]
  - Drug diversion [Unknown]
  - Off label use [Not Recovered/Not Resolved]
